FAERS Safety Report 8281028 (Version 26)
Quarter: 2015Q3

REPORT INFORMATION
  Report Type: Spontaneous
  Country: CA (occurrence: CA)
  Receive Date: 20111208
  Receipt Date: 20150708
  Transmission Date: 20151125
  Serious: Yes (Hospitalization, Other)
  Sender: FDA-Public Use
  Company Number: CA-ROCHE-1017934

PATIENT
  Age: 24 Year
  Sex: Female
  Weight: 41 kg

DRUGS (20)
  1. XOLAIR [Suspect]
     Active Substance: OMALIZUMAB
     Route: 058
     Dates: start: 20120323
  2. XOLAIR [Suspect]
     Active Substance: OMALIZUMAB
     Route: 058
     Dates: start: 20120807
  3. XOLAIR [Suspect]
     Active Substance: OMALIZUMAB
     Route: 058
     Dates: start: 20120914
  4. XOLAIR [Suspect]
     Active Substance: OMALIZUMAB
     Route: 058
     Dates: start: 20121116
  5. XOLAIR [Suspect]
     Active Substance: OMALIZUMAB
     Route: 058
     Dates: start: 20130215
  6. XOLAIR [Suspect]
     Active Substance: OMALIZUMAB
     Dosage: IN MAY (DATE AND YEAR NOT SPECIFIED)
     Route: 058
  7. LUPRON [Concomitant]
     Active Substance: LEUPROLIDE ACETATE
  8. XOLAIR [Suspect]
     Active Substance: OMALIZUMAB
     Route: 058
     Dates: start: 20111126
  9. XOLAIR [Suspect]
     Active Substance: OMALIZUMAB
     Route: 058
     Dates: end: 20131030
  10. VENTOLIN [Concomitant]
     Active Substance: ALBUTEROL SULFATE
  11. XOLAIR [Suspect]
     Active Substance: OMALIZUMAB
     Route: 065
     Dates: start: 20111221
  12. FLOVENT [Concomitant]
     Active Substance: FLUTICASONE PROPIONATE
  13. XOLAIR [Suspect]
     Active Substance: OMALIZUMAB
     Route: 058
     Dates: start: 20120820
  14. ADVAIR HFA [Concomitant]
     Active Substance: FLUTICASONE PROPIONATE\SALMETEROL XINAFOATE
  15. SINGULAIR [Concomitant]
     Active Substance: MONTELUKAST SODIUM
  16. LOSEC [Concomitant]
     Active Substance: OMEPRAZOLE
  17. XOLAIR [Suspect]
     Active Substance: OMALIZUMAB
     Indication: ASTHMA
     Route: 058
     Dates: start: 20110719
  18. XOLAIR [Suspect]
     Active Substance: OMALIZUMAB
     Route: 058
     Dates: start: 20120529
  19. SEPTRA [Concomitant]
     Active Substance: SULFAMETHOXAZOLE\TRIMETHOPRIM
  20. FLONASE [Concomitant]
     Active Substance: FLUTICASONE PROPIONATE

REACTIONS (19)
  - Asthma [Not Recovered/Not Resolved]
  - Weight decreased [Unknown]
  - Respiratory disorder [Unknown]
  - Memory impairment [Unknown]
  - Hormone level abnormal [Unknown]
  - Discomfort [Recovering/Resolving]
  - Pulseless electrical activity [Unknown]
  - Injection site mass [Unknown]
  - Drug ineffective [Unknown]
  - Injection site pain [Unknown]
  - Pain [Unknown]
  - Brain injury [Unknown]
  - Somnolence [Unknown]
  - Dysphonia [Unknown]
  - Status asthmaticus [Not Recovered/Not Resolved]
  - Fatigue [Unknown]
  - Peripheral swelling [Unknown]
  - Cough [Unknown]
  - Oropharyngeal pain [Unknown]

NARRATIVE: CASE EVENT DATE: 20111122
